FAERS Safety Report 12900703 (Version 6)
Quarter: 2018Q3

REPORT INFORMATION
  Report Type: Report from Study
  Country: JP (occurrence: JP)
  Receive Date: 20161101
  Receipt Date: 20180706
  Transmission Date: 20181010
  Serious: Yes (Other)
  Sender: FDA-Public Use
  Company Number: JP-INCYTE CORPORATION-2016IN006893

PATIENT

DRUGS (20)
  1. JAKAVI [Suspect]
     Active Substance: RUXOLITINIB
     Dosage: 10 MG, BID
     Route: 048
     Dates: start: 20150610, end: 20150825
  2. LOSARTAN POTASSIUM. [Concomitant]
     Active Substance: LOSARTAN POTASSIUM
     Indication: PRODUCT USED FOR UNKNOWN INDICATION
     Dosage: 25 MG, UNK
     Route: 065
  3. JAKAVI [Suspect]
     Active Substance: RUXOLITINIB
     Dosage: 5 MG, BID
     Route: 048
     Dates: start: 20160118, end: 20161204
  4. JAKAVI [Suspect]
     Active Substance: RUXOLITINIB
     Dosage: 5 MG, BID
     Route: 048
     Dates: start: 20171030
  5. NICORANDIL [Concomitant]
     Active Substance: NICORANDIL
     Indication: PRODUCT USED FOR UNKNOWN INDICATION
     Dosage: 7.5 MG, QD
     Route: 065
  6. ISOSORBIDE. [Concomitant]
     Active Substance: ISOSORBIDE
     Indication: PRODUCT USED FOR UNKNOWN INDICATION
     Dosage: UNK
     Route: 065
  7. JAKAVI [Suspect]
     Active Substance: RUXOLITINIB
     Dosage: 5 MG, TID
     Route: 048
     Dates: start: 20150427, end: 20150609
  8. ISONIAZID. [Concomitant]
     Active Substance: ISONIAZID
     Indication: PROPHYLAXIS
     Dosage: 300 MG, UNK
     Route: 065
  9. JAKAVI [Suspect]
     Active Substance: RUXOLITINIB
     Indication: PRIMARY MYELOFIBROSIS
     Dosage: 10 MG, BID
     Route: 048
     Dates: start: 20150209, end: 20150409
  10. JAKAVI [Suspect]
     Active Substance: RUXOLITINIB
     Dosage: 5 MG, BID
     Route: 048
     Dates: start: 20170110, end: 20170528
  11. SPIRONOLACTONE. [Concomitant]
     Active Substance: SPIRONOLACTONE
     Indication: PRODUCT USED FOR UNKNOWN INDICATION
     Dosage: 25 MG, QD
     Route: 065
  12. LANSOPRAZOLE. [Concomitant]
     Active Substance: LANSOPRAZOLE
     Indication: PRODUCT USED FOR UNKNOWN INDICATION
     Dosage: 15 MG, QD
     Route: 065
  13. JAKAVI [Suspect]
     Active Substance: RUXOLITINIB
     Dosage: 5 MG, TID
     Route: 048
     Dates: start: 20150826, end: 20160117
  14. JAKAVI [Suspect]
     Active Substance: RUXOLITINIB
     Dosage: BID
     Route: 048
     Dates: start: 20161205, end: 20170109
  15. FUROSEMIDE. [Concomitant]
     Active Substance: FUROSEMIDE
     Indication: PRODUCT USED FOR UNKNOWN INDICATION
     Dosage: 20 MG, QD
     Route: 065
  16. ASPIRIN. [Concomitant]
     Active Substance: ASPIRIN
     Indication: PRODUCT USED FOR UNKNOWN INDICATION
     Dosage: 100 MG, QD
     Route: 065
  17. PITAVASTATIN. [Concomitant]
     Active Substance: PITAVASTATIN CALCIUM
     Indication: PRODUCT USED FOR UNKNOWN INDICATION
     Dosage: 2 MG, QD
     Route: 065
  18. INDACATEROL MALEATE [Concomitant]
     Active Substance: INDACATEROL MALEATE
     Indication: PRODUCT USED FOR UNKNOWN INDICATION
     Dosage: UNK
     Route: 065
  19. JAKAVI [Suspect]
     Active Substance: RUXOLITINIB
     Dosage: BID
     Route: 048
     Dates: start: 20170529, end: 20171029
  20. VITAMIN B6 [Concomitant]
     Active Substance: PYRIDOXINE HYDROCHLORIDE
     Indication: PROPHYLAXIS
     Dosage: UNK
     Route: 065

REACTIONS (11)
  - Anaemia [Recovered/Resolved]
  - Anaemia [Not Recovered/Not Resolved]
  - Hypertensive emergency [Unknown]
  - Myeloblast percentage increased [Unknown]
  - Splenomegaly [Unknown]
  - White blood cell count increased [Unknown]
  - Aspartate aminotransferase increased [Recovered/Resolved]
  - Primary myelofibrosis [Not Recovered/Not Resolved]
  - Aspartate aminotransferase increased [Not Recovered/Not Resolved]
  - General symptom [Unknown]
  - Dizziness [Unknown]

NARRATIVE: CASE EVENT DATE: 20150406
